FAERS Safety Report 11989900 (Version 1)
Quarter: 2016Q1

REPORT INFORMATION
  Report Type: Spontaneous
  Country: US (occurrence: US)
  Receive Date: 20160202
  Receipt Date: 20160202
  Transmission Date: 20160526
  Serious: No
  Sender: FDA-Public Use
  Company Number: US-IMPAX LABORATORIES, INC-2015-IPXL-01197

PATIENT
  Sex: Female
  Weight: 58.5 kg

DRUGS (2)
  1. DICLOFENAC [Concomitant]
     Active Substance: DICLOFENAC
     Indication: PRODUCT USED FOR UNKNOWN INDICATION
     Dosage: 170, UNK GEL
     Route: 061
  2. RYTARY [Suspect]
     Active Substance: CARBIDOPA\LEVODOPA
     Indication: PARKINSON^S DISEASE
     Dosage: UNK, 4 CAPSULES BID AND 3 CAPSULES DAILY
     Route: 048
     Dates: start: 20151013

REACTIONS (1)
  - Maximum heart rate increased [Not Recovered/Not Resolved]

NARRATIVE: CASE EVENT DATE: 2015
